FAERS Safety Report 11837949 (Version 2)
Quarter: 2016Q1

REPORT INFORMATION
  Report Type: Spontaneous
  Country: CN (occurrence: CN)
  Receive Date: 20151215
  Receipt Date: 20160205
  Transmission Date: 20160525
  Serious: Yes (Hospitalization)
  Sender: FDA-Public Use
  Company Number: CN-GLAXOSMITHKLINE-CN2015GSK176647

PATIENT
  Age: 4 Year
  Sex: Female
  Weight: 17 kg

DRUGS (3)
  1. TONG QIAO BI YAN PARTICLE [Concomitant]
     Indication: RHINITIS
     Dosage: 1 PACKAGE, BID
     Route: 048
  2. FLIXONASE [Suspect]
     Active Substance: FLUTICASONE PROPIONATE
     Indication: RHINITIS
     Dosage: 1 DF, QD
     Dates: start: 2014
  3. FLIXOTIDE [Suspect]
     Active Substance: FLUTICASONE PROPIONATE
     Indication: ASTHMA
     Dosage: UNK
     Route: 055
     Dates: start: 201509

REACTIONS (5)
  - Hyperplasia [Recovered/Resolved]
  - Rhinitis [Recovering/Resolving]
  - Cough [Recovered/Resolved]
  - Overdose [Unknown]
  - Asthma [Unknown]

NARRATIVE: CASE EVENT DATE: 2014
